FAERS Safety Report 12579778 (Version 2)
Quarter: 2016Q3

REPORT INFORMATION
  Report Type: Report from Study
  Country: US (occurrence: US)
  Receive Date: 20160721
  Receipt Date: 20160729
  Transmission Date: 20161109
  Serious: Yes (Disabling, Other)
  Sender: FDA-Public Use
  Company Number: US-AMGEN-USASL2016092935

PATIENT
  Age: 60 Year
  Sex: Female

DRUGS (1)
  1. ENBREL [Suspect]
     Active Substance: ETANERCEPT
     Indication: PSORIATIC ARTHROPATHY
     Dosage: 50 MG, WEEKLY
     Route: 058
     Dates: start: 2014

REACTIONS (6)
  - Arthritis [Unknown]
  - Disability [Unknown]
  - Localised infection [Unknown]
  - Psoriasis [Unknown]
  - Skin ulcer [Unknown]
  - Breast cyst excision [Unknown]

NARRATIVE: CASE EVENT DATE: 20150327
